FAERS Safety Report 9851128 (Version 1)
Quarter: 2014Q1

REPORT INFORMATION
  Report Type: Spontaneous
  Country: US (occurrence: US)
  Receive Date: 20140128
  Receipt Date: 20140128
  Transmission Date: 20141002
  Serious: No
  Sender: FDA-Public Use
  Company Number: US-B.I. PHARMACEUTICALS,INC./RIDGEFIELD-2014-BI-02444BP

PATIENT
  Age: 53 Year
  Sex: Female
  Weight: 54 kg

DRUGS (1)
  1. ZANTAC (RANITIDINE HYDROCHLORIDE) [Suspect]
     Indication: DYSPEPSIA
     Dosage: 300 MG
     Route: 048
     Dates: start: 201401

REACTIONS (2)
  - Dyspepsia [Not Recovered/Not Resolved]
  - Gastrooesophageal reflux disease [Not Recovered/Not Resolved]
